FAERS Safety Report 12182838 (Version 1)
Quarter: 2016Q1

REPORT INFORMATION
  Report Type: Spontaneous
  Country: RU (occurrence: RU)
  Receive Date: 20160316
  Receipt Date: 20160316
  Transmission Date: 20160526
  Serious: Yes (Hospitalization)
  Sender: FDA-Public Use
  Company Number: RU-BAYER-2016-042933

PATIENT
  Age: 24 Year
  Sex: Female

DRUGS (2)
  1. CIPROFLOXACIN. [Suspect]
     Active Substance: CIPROFLOXACIN
     Indication: BODY TEMPERATURE INCREASED
  2. CIPROFLOXACIN. [Suspect]
     Active Substance: CIPROFLOXACIN
     Indication: OROPHARYNGEAL PAIN
     Dosage: UNK
     Dates: end: 20150901

REACTIONS (18)
  - Stevens-Johnson syndrome [None]
  - Mucosal hyperaemia [None]
  - Dysuria [None]
  - Herpes virus infection [None]
  - Malaise [None]
  - Pruritus genital [None]
  - Dysphagia [None]
  - Aphthous ulcer [None]
  - Body temperature increased [None]
  - Feeling hot [None]
  - Skin exfoliation [None]
  - Asthenia [None]
  - Rash [None]
  - Scab [None]
  - Blister [None]
  - Hypoaesthesia oral [None]
  - Rash vesicular [None]
  - Pruritus [None]

NARRATIVE: CASE EVENT DATE: 20150901
